FAERS Safety Report 13730278 (Version 2)
Quarter: 2017Q4

REPORT INFORMATION
  Report Type: Spontaneous
  Country: US (occurrence: US)
  Receive Date: 20170707
  Receipt Date: 20171121
  Transmission Date: 20180320
  Serious: No
  Sender: FDA-Public Use
  Company Number: US-JNJFOC-20170524369

PATIENT
  Sex: Male
  Weight: 72.12 kg

DRUGS (1)
  1. XARELTO [Suspect]
     Active Substance: RIVAROXABAN
     Indication: THROMBOSIS
     Dosage: ONCE A  DAY
     Route: 048
     Dates: start: 2017, end: 201702

REACTIONS (7)
  - Skin haemorrhage [Recovered/Resolved]
  - Skin fissures [Recovering/Resolving]
  - Wound complication [Recovering/Resolving]
  - Wound haemorrhage [Recovering/Resolving]
  - Skin atrophy [Recovering/Resolving]
  - Injury [Unknown]
  - Rash macular [Recovering/Resolving]

NARRATIVE: CASE EVENT DATE: 2017
